FAERS Safety Report 19020101 (Version 2)
Quarter: 2021Q1

REPORT INFORMATION
  Report Type: Spontaneous
  Country: US (occurrence: US)
  Receive Date: 20210317
  Receipt Date: 20210322
  Transmission Date: 20210420
  Serious: No
  Sender: FDA-Public Use
  Company Number: US-PFIZER INC-2021264878

PATIENT
  Age: 56 Year
  Sex: Female
  Weight: 86.18 kg

DRUGS (1)
  1. EPINEPHRINE. [Suspect]
     Active Substance: EPINEPHRINE
     Dosage: UNK

REACTIONS (2)
  - Cardiac disorder [Unknown]
  - Dyspnoea [Unknown]
